APPROVED DRUG PRODUCT: BETHANECHOL CHLORIDE
Active Ingredient: BETHANECHOL CHLORIDE
Strength: 50MG
Dosage Form/Route: TABLET;ORAL
Application: A040518 | Product #001
Applicant: WOCKHARDT LTD
Approved: Sep 29, 2003 | RLD: No | RS: No | Type: DISCN